FAERS Safety Report 11800609 (Version 7)
Quarter: 2017Q3

REPORT INFORMATION
  Report Type: Report from Study
  Country: CA (occurrence: CA)
  Receive Date: 20151204
  Receipt Date: 20170703
  Transmission Date: 20171127
  Serious: Yes (Other)
  Sender: FDA-Public Use
  Company Number: CA-ROCHE-1662482

PATIENT
  Age: 70 Year
  Sex: Male

DRUGS (19)
  1. ALFUZOSIN [Concomitant]
     Active Substance: ALFUZOSIN
  2. ACETAMINOPHEN. [Concomitant]
     Active Substance: ACETAMINOPHEN
     Indication: PREMEDICATION
     Route: 048
     Dates: start: 20151116
  3. ACETAMINOPHEN. [Concomitant]
     Active Substance: ACETAMINOPHEN
     Route: 048
     Dates: start: 20160922
  4. PROZAC [Concomitant]
     Active Substance: FLUOXETINE HYDROCHLORIDE
  5. ATENOLOL. [Concomitant]
     Active Substance: ATENOLOL
  6. CYMBALTA [Suspect]
     Active Substance: DULOXETINE HYDROCHLORIDE
     Indication: PRODUCT USED FOR UNKNOWN INDICATION
     Route: 065
     Dates: start: 2015
  7. DIPHENHYDRAMINE HCL [Concomitant]
     Active Substance: DIPHENHYDRAMINE HYDROCHLORIDE
     Indication: PREMEDICATION
     Route: 048
     Dates: start: 20151116
  8. METHYLPREDNISOLONE. [Concomitant]
     Active Substance: METHYLPREDNISOLONE
     Indication: PREMEDICATION
     Route: 042
     Dates: start: 20151116
  9. CRESTOR [Concomitant]
     Active Substance: ROSUVASTATIN CALCIUM
  10. RISEDRONATE [Concomitant]
     Active Substance: RISEDRONATE SODIUM
  11. PANTOLOC [Concomitant]
     Active Substance: PANTOPRAZOLE SODIUM
  12. METHOTREXATE. [Concomitant]
     Active Substance: METHOTREXATE
  13. ACETAMINOPHEN. [Concomitant]
     Active Substance: ACETAMINOPHEN
     Route: 048
     Dates: start: 20160205, end: 20160205
  14. SULFASALAZINE. [Concomitant]
     Active Substance: SULFASALAZINE
  15. TOVIAZ [Concomitant]
     Active Substance: FESOTERODINE FUMARATE
  16. PREDNISONE. [Concomitant]
     Active Substance: PREDNISONE
  17. FOLIC ACID. [Concomitant]
     Active Substance: FOLIC ACID
  18. RITUXAN [Suspect]
     Active Substance: RITUXIMAB
     Indication: RHEUMATOID ARTHRITIS
     Dosage: PREVIOUS INFUSION ON: 20/JUN/2017.
     Route: 042
     Dates: start: 20151116
  19. FINASTERIDE. [Concomitant]
     Active Substance: FINASTERIDE

REACTIONS (24)
  - Rectal haemorrhage [Not Recovered/Not Resolved]
  - Hallucination [Unknown]
  - Blood pressure systolic increased [Unknown]
  - Spinal osteoarthritis [Not Recovered/Not Resolved]
  - Osteoarthritis [Unknown]
  - Depression [Not Recovered/Not Resolved]
  - Abdominal pain [Not Recovered/Not Resolved]
  - Psychiatric symptom [Not Recovered/Not Resolved]
  - Body temperature decreased [Unknown]
  - Oedema peripheral [Unknown]
  - Suicidal ideation [Not Recovered/Not Resolved]
  - Depression [Unknown]
  - Blood pressure diastolic abnormal [Unknown]
  - Arrhythmia [Not Recovered/Not Resolved]
  - Poor personal hygiene [Unknown]
  - Blood pressure increased [Unknown]
  - Stomatitis [Unknown]
  - Dry mouth [Not Recovered/Not Resolved]
  - Large intestine polyp [Unknown]
  - Confusional state [Unknown]
  - Oxygen saturation decreased [Unknown]
  - Groin infection [Not Recovered/Not Resolved]
  - Arthralgia [Not Recovered/Not Resolved]
  - Blood pressure fluctuation [Unknown]

NARRATIVE: CASE EVENT DATE: 20151116
